FAERS Safety Report 5530835-3 (Version None)
Quarter: 2007Q4

REPORT INFORMATION
  Report Type: 
  Country: None (occurrence: None)
  Receive Date: 20071130
  Receipt Date: 20071121
  Transmission Date: 20080405
  Serious: Yes (Other)
  Sender: FDA-Public Use
  Company Number: CA-JNJFOC-20070802177

PATIENT
  Sex: Female
  Weight: 53 kg

DRUGS (7)
  1. REMICADE [Suspect]
     Route: 042
  2. REMICADE [Suspect]
     Route: 042
  3. REMICADE [Suspect]
     Indication: CROHN'S DISEASE
     Route: 042
  4. EFFEXOR [Concomitant]
  5. CALCIUM [Concomitant]
  6. FOLATE [Concomitant]
  7. EMTEC [Concomitant]

REACTIONS (8)
  - ERYTHEMA [None]
  - INFLAMMATION [None]
  - INFUSION RELATED REACTION [None]
  - MOVEMENT DISORDER [None]
  - MYALGIA [None]
  - PALLOR [None]
  - PRESYNCOPE [None]
  - PRURITUS GENERALISED [None]
